FAERS Safety Report 14127750 (Version 2)
Quarter: 2017Q4

REPORT INFORMATION
  Report Type: Spontaneous
  Country: JP (occurrence: JP)
  Receive Date: 20171026
  Receipt Date: 20171110
  Transmission Date: 20180321
  Serious: Yes (Hospitalization)
  Sender: FDA-Public Use
  Company Number: JP-ASTELLAS-2017JP020182AA

PATIENT
  Age: 34 Year
  Sex: Male

DRUGS (10)
  1. CELLCEPT [Concomitant]
     Active Substance: MYCOPHENOLATE MOFETIL\MYCOPHENOLATE MOFETIL HYDROCHLORIDE
     Indication: IMMUNOSUPPRESSANT DRUG THERAPY
     Dosage: UNK UNK, UNKNOWN FREQ.
     Route: 048
     Dates: start: 20160801, end: 20170331
  2. CELLCEPT [Concomitant]
     Active Substance: MYCOPHENOLATE MOFETIL\MYCOPHENOLATE MOFETIL HYDROCHLORIDE
     Dosage: UNK UNK, UNKNOWN FREQ.
     Route: 048
  3. PROGRAF [Suspect]
     Active Substance: TACROLIMUS\TACROLIMUS ANHYDROUS
     Indication: PROPHYLAXIS AGAINST TRANSPLANT REJECTION
     Dosage: UNK UNK, UNKNOWN FREQ.
     Route: 048
     Dates: start: 20160818, end: 2017
  4. PROGRAF [Interacting]
     Active Substance: TACROLIMUS\TACROLIMUS ANHYDROUS
     Dosage: UNK UNK, UNKNOWN FREQ.
     Route: 048
     Dates: start: 2017, end: 2017
  5. ISOTONIC [Concomitant]
     Indication: HEART TRANSPLANT
     Route: 041
  6. GLUCOSE [Concomitant]
     Active Substance: DEXTROSE
     Indication: MEDICATION DILUTION
     Dosage: UNK UNK, CONTINUOUS
     Route: 041
     Dates: start: 20170606
  7. PROGRAF [Suspect]
     Active Substance: TACROLIMUS\TACROLIMUS ANHYDROUS
     Indication: PROPHYLAXIS AGAINST TRANSPLANT REJECTION
     Dosage: 2 MG/H, CONTINUOUS
     Route: 041
     Dates: start: 20170606
  8. EVEROLIMUS. [Interacting]
     Active Substance: EVEROLIMUS
     Indication: IMMUNOSUPPRESSANT DRUG THERAPY
     Dosage: UNK UNK, UNKNOWN FREQ.
     Route: 048
     Dates: start: 20170401
  9. PREDONINE [Concomitant]
     Active Substance: PREDNISOLONE
     Indication: IMMUNOSUPPRESSANT DRUG THERAPY
     Dosage: UNK UNK, UNKNOWN FREQ.
     Route: 048
     Dates: start: 20160801
  10. PROGRAF [Interacting]
     Active Substance: TACROLIMUS\TACROLIMUS ANHYDROUS
     Dosage: UNK UNK, UNKNOWN FREQ.
     Route: 048
     Dates: start: 2017

REACTIONS (6)
  - Vessel puncture site swelling [Recovering/Resolving]
  - Drug level decreased [Not Recovered/Not Resolved]
  - Drug level decreased [Not Recovered/Not Resolved]
  - Vascular pain [Recovering/Resolving]
  - Drug interaction [Unknown]
  - Renal impairment [Unknown]

NARRATIVE: CASE EVENT DATE: 201705
